FAERS Safety Report 11059313 (Version 2)
Quarter: 2015Q2

REPORT INFORMATION
  Report Type: Report from Study
  Country: IL (occurrence: IL)
  Receive Date: 20150423
  Receipt Date: 20150427
  Transmission Date: 20150821
  Serious: Yes (Death, Hospitalization)
  Sender: FDA-Public Use
  Company Number: IL-SA-2015SA050595

PATIENT
  Age: 67 Year
  Sex: Male

DRUGS (1)
  1. RENVELA [Suspect]
     Active Substance: SEVELAMER CARBONATE
     Indication: CHRONIC KIDNEY DISEASE
     Route: 048

REACTIONS (3)
  - Peripheral venous disease [Unknown]
  - Infection [Fatal]
  - Wound [Unknown]

NARRATIVE: CASE EVENT DATE: 20150405
